FAERS Safety Report 6097036-4 (Version None)
Quarter: 2009Q1

REPORT INFORMATION
  Report Type: 
  Country: None (occurrence: None)
  Receive Date: 20090227
  Receipt Date: 20090219
  Transmission Date: 20090719
  Serious: Yes (Hospitalization, Other)
  Sender: FDA-Public Use
  Company Number: PHHY2008MX20337

PATIENT
  Sex: Male

DRUGS (2)
  1. STALEVO 100 [Suspect]
     Indication: PARKINSON'S DISEASE
     Dosage: 100/25/200MG, 4 TABS PER DAY
     Route: 048
     Dates: start: 20060101
  2. CAPTOPRIL [Concomitant]
     Indication: HYPERTENSION

REACTIONS (4)
  - BLADDER CATHETERISATION [None]
  - BRONCHOPNEUMONIA [None]
  - OEDEMA [None]
  - URINARY TRACT INFECTION [None]
